FAERS Safety Report 14309506 (Version 5)
Quarter: 2020Q4

REPORT INFORMATION
  Report Type: Spontaneous
  Country: ES (occurrence: ES)
  Receive Date: 20171220
  Receipt Date: 20201119
  Transmission Date: 20210113
  Serious: Yes (Hospitalization, Other)
  Sender: FDA-Public Use
  Company Number: PHHY2017ES189286

PATIENT
  Age: 78 Year
  Sex: Male

DRUGS (5)
  1. ERTAPENEM SODIUM [Suspect]
     Active Substance: ERTAPENEM SODIUM
     Indication: PYREXIA
  2. MEROPENEM. [Suspect]
     Active Substance: MEROPENEM
     Indication: URINARY TRACT INFECTION
     Dosage: 3 G, QD
     Route: 042
     Dates: start: 20171002, end: 20171010
  3. ERTAPENEM SODIUM [Suspect]
     Active Substance: ERTAPENEM SODIUM
     Indication: URINARY TRACT INFECTION
     Dosage: 1 G, QD (CUMULATIVE DOSE 3G)
     Route: 042
     Dates: start: 20170929, end: 20171002
  4. QUETIAPINE FUMARATE. [Suspect]
     Active Substance: QUETIAPINE FUMARATE
     Indication: PSYCHOMOTOR HYPERACTIVITY
     Dosage: 25 MG, QD (CUMULATIVE DOSE 125 MG)
     Route: 048
     Dates: start: 20170928, end: 20171003
  5. MEROPENEM. [Suspect]
     Active Substance: MEROPENEM
     Indication: PYREXIA

REACTIONS (3)
  - Encephalopathy [Recovered/Resolved]
  - Off label use [Unknown]
  - Product use in unapproved indication [Unknown]

NARRATIVE: CASE EVENT DATE: 20171002
